FAERS Safety Report 5147798-5 (Version None)
Quarter: 2006Q4

REPORT INFORMATION
  Report Type: 
  Country: None (occurrence: None)
  Receive Date: 20061106
  Receipt Date: 20061030
  Transmission Date: 20070319
  Serious: Yes (Other)
  Sender: FDA-Public Use
  Company Number: GXKR2006GB06812

PATIENT
  Age: 73 Year
  Sex: Female
  Weight: 64 kg

DRUGS (6)
  1. METFORMIN (NGX) (METFORMIN) [Suspect]
     Indication: DIABETES MELLITUS
     Dosage: 500 MG, ORAL
     Route: 048
     Dates: start: 20060810, end: 20060818
  2. DOXAZOSIN (DOXAZOSIN) [Concomitant]
  3. FELODIPINE [Concomitant]
  4. METOCLOPRAMIDE [Concomitant]
  5. ACETAMINOPHEN [Concomitant]
  6. ROSUVASTATIN (ROSUVASTATIN) [Concomitant]

REACTIONS (1)
  - DEPRESSION [None]
